FAERS Safety Report 25937908 (Version 3)
Quarter: 2025Q4

REPORT INFORMATION
  Report Type: Spontaneous
  Country: US (occurrence: US)
  Receive Date: 20251018
  Receipt Date: 20251224
  Transmission Date: 20260119
  Serious: Yes (Other)
  Sender: CSL BEHRING
  Company Number: US-BEH-2025221677

PATIENT
  Age: 40 Year
  Sex: Male

DRUGS (10)
  1. HUMATE-P [Suspect]
     Active Substance: HUMAN COAGULATION FACTOR VIII/VON WILLEBRAND FACTOR COMPLEX
     Indication: Von Willebrand^s disease
     Dosage: 7350 IU, TIW
     Route: 042
     Dates: start: 202306
  2. HUMATE-P [Suspect]
     Active Substance: HUMAN COAGULATION FACTOR VIII/VON WILLEBRAND FACTOR COMPLEX
     Dosage: 7350 IU, TIW
     Route: 042
     Dates: start: 202306
  3. HUMATE-P [Suspect]
     Active Substance: HUMAN COAGULATION FACTOR VIII/VON WILLEBRAND FACTOR COMPLEX
     Dosage: 600 IU, TIW
     Route: 042
     Dates: start: 202306
  4. HUMATE-P [Suspect]
     Active Substance: HUMAN COAGULATION FACTOR VIII/VON WILLEBRAND FACTOR COMPLEX
     Dosage: 600 IU, PRN
     Route: 042
     Dates: start: 202306
  5. HUMATE-P [Suspect]
     Active Substance: HUMAN COAGULATION FACTOR VIII/VON WILLEBRAND FACTOR COMPLEX
     Dosage: 2400 IU, TIW
     Route: 042
     Dates: start: 202306
  6. HUMATE-P [Suspect]
     Active Substance: HUMAN COAGULATION FACTOR VIII/VON WILLEBRAND FACTOR COMPLEX
     Dosage: 2400 IU, PRN
     Route: 042
     Dates: start: 202306
  7. HUMATE-P [Suspect]
     Active Substance: HUMAN COAGULATION FACTOR VIII/VON WILLEBRAND FACTOR COMPLEX
     Dosage: 7350 RCOF UNITS (6615-8085) SLOW IV PUSH ON MONDAYS, WEDNESDAYS, AND FRIDAYS AS PROPHYLAXIS
     Route: 042
  8. HUMATE-P [Suspect]
     Active Substance: HUMAN COAGULATION FACTOR VIII/VON WILLEBRAND FACTOR COMPLEX
     Dosage: 7350 RCOF UNITS (6615-8085) SLOW IV PUSH EVERY 12 HOURS AS NEEDED FOR BREAKTHROUGH BLEEDING
     Route: 042
  9. HUMATE-P [Suspect]
     Active Substance: HUMAN COAGULATION FACTOR VIII/VON WILLEBRAND FACTOR COMPLEX
     Dosage: 7350 RCOF UNITS (6615-8085) SLOW IV PUSH EVERY 12 HOURS AS NEEDED FOR BREAKTHROUGH BLEEDING
     Route: 042
  10. SODIUM CHLORIDE [Concomitant]
     Active Substance: SODIUM CHLORIDE

REACTIONS (3)
  - Haemarthrosis [Recovered/Resolved]
  - Haemarthrosis [Unknown]
  - Haemorrhage [Unknown]

NARRATIVE: CASE EVENT DATE: 20250929
